FAERS Safety Report 21233296 (Version 1)
Quarter: 2022Q3

REPORT INFORMATION
  Report Type: Report from Study
  Country: DE (occurrence: None)
  Receive Date: 20220819
  Receipt Date: 20220819
  Transmission Date: 20221027
  Serious: Yes (Death)
  Sender: FDA-Public Use
  Company Number: DE-Merck Healthcare KGaA-9344508

PATIENT
  Sex: Male

DRUGS (1)
  1. TEPOTINIB [Suspect]
     Active Substance: TEPOTINIB
     Indication: Product used for unknown indication
     Dates: start: 20211012, end: 20211123

REACTIONS (4)
  - Death [Fatal]
  - Oedema peripheral [Unknown]
  - Disease progression [Unknown]
  - General physical health deterioration [Unknown]
